FAERS Safety Report 6864543-3 (Version None)
Quarter: 2010Q3

REPORT INFORMATION
  Report Type: 
  Country: None (occurrence: None)
  Receive Date: 20100721
  Receipt Date: 20080619
  Transmission Date: 20110219
  Serious: No
  Sender: FDA-Public Use
  Company Number: US-PFIZER INC-2008029189

PATIENT
  Sex: Male
  Weight: 102.97 kg

DRUGS (4)
  1. CHANTIX [Suspect]
     Indication: TOBACCO ABUSE
     Dates: start: 20080305, end: 20080515
  2. GLUCOTROL [Concomitant]
     Dates: start: 20080131
  3. ADVAIR DISKUS 100/50 [Concomitant]
     Dates: start: 20080104
  4. ALL OTHER THERAPEUTIC PRODUCTS [Concomitant]
     Dates: start: 20080229

REACTIONS (5)
  - ABNORMAL DREAMS [None]
  - CONFUSIONAL STATE [None]
  - FATIGUE [None]
  - RASH [None]
  - SOMNOLENCE [None]
